FAERS Safety Report 12950613 (Version 1)
Quarter: 2016Q4

REPORT INFORMATION
  Report Type: Spontaneous
  Country: US (occurrence: US)
  Receive Date: 20161117
  Receipt Date: 20161117
  Transmission Date: 20170207
  Serious: Yes (Other)
  Sender: FDA-Public Use
  Company Number: None

PATIENT
  Age: 83 Year
  Sex: Female
  Weight: 78.93 kg

DRUGS (1)
  1. PRALUENT [Suspect]
     Active Substance: ALIROCUMAB
     Indication: HYPERLIPIDAEMIA
     Dosage: PRALUENT 75 MG/ML -  EVERY 2 WEEKS IM INJECTION
     Route: 030
     Dates: start: 20161028

REACTIONS (3)
  - Feeling abnormal [None]
  - Hot flush [None]
  - Influenza like illness [None]

NARRATIVE: CASE EVENT DATE: 20161102
